FAERS Safety Report 4636080-8 (Version None)
Quarter: 2005Q2

REPORT INFORMATION
  Report Type: 
  Country: None (occurrence: None)
  Receive Date: 20050325
  Receipt Date: 20050203
  Transmission Date: 20051028
  Serious: No
  Sender: FDA-Public Use
  Company Number: USA040773205

PATIENT
  Age: 83 Year
  Sex: Female

DRUGS (6)
  1. FORTEO [Suspect]
     Indication: OSTEOPOROSIS
     Dates: start: 20040719, end: 20041101
  2. LIBRIUM [Concomitant]
  3. BUTISOL (SECBUTABARBITAL) [Concomitant]
  4. SYNTHROID [Concomitant]
  5. NEURONTIN [Concomitant]
  6. TYLENOL [Concomitant]

REACTIONS (10)
  - ABDOMINAL PAIN UPPER [None]
  - ANGER [None]
  - CARDIAC DISORDER [None]
  - DIFFICULTY IN WALKING [None]
  - DIZZINESS [None]
  - JOINT SWELLING [None]
  - MOBILITY DECREASED [None]
  - NAUSEA [None]
  - OEDEMA PERIPHERAL [None]
  - PAIN IN EXTREMITY [None]
